FAERS Safety Report 4618653-1 (Version None)
Quarter: 2005Q2

REPORT INFORMATION
  Report Type: 
  Country: None (occurrence: None)
  Receive Date: 20050311
  Receipt Date: 20041206
  Transmission Date: 20051028
  Serious: No
  Sender: FDA-Public Use
  Company Number: 2004-BP-08955BP

PATIENT
  Age: 79 Year
  Sex: Female

DRUGS (11)
  1. SPIRIVA [Suspect]
     Indication: CARDIAC FAILURE CONGESTIVE
     Dosage: 18 MCG (18 MCG), IH
     Route: 055
  2. SPIRIVA [Suspect]
     Indication: DYSPNOEA EXERTIONAL
     Dosage: 18 MCG (18 MCG), IH
     Route: 055
  3. ALBUTEROL [Concomitant]
  4. COMBIVENT [Concomitant]
  5. ADVAIR DISKUS 100/50 [Concomitant]
  6. COUMADIN [Concomitant]
  7. LASIX (LASIX [Concomitant]
  8. LISINOPRIL [Concomitant]
  9. LAMICTAL [Concomitant]
  10. LASIKS [Concomitant]
  11. WARFARIN SODIUM [Concomitant]

REACTIONS (1)
  - DRUG INEFFECTIVE [None]
